FAERS Safety Report 12118502 (Version 1)
Quarter: 2016Q1

REPORT INFORMATION
  Report Type: Spontaneous
  Country: US (occurrence: None)
  Receive Date: 20160224
  Receipt Date: 20160224
  Transmission Date: 20160526
  Serious: Yes (Other)
  Sender: FDA-Public Use
  Company Number: None

PATIENT
  Age: 49 Year
  Sex: Female
  Weight: 102.06 kg

DRUGS (4)
  1. HYDROCHLOROTHIAZIDE. [Concomitant]
     Active Substance: HYDROCHLOROTHIAZIDE
  2. AMLODIPINE [Suspect]
     Active Substance: AMLODIPINE BESYLATE
     Indication: HYPERTENSION
     Dosage: 10 MG 1 PILL IN MORNING BY MOUTH
     Route: 048
     Dates: start: 20160118, end: 20160203
  3. THYROXINE [Concomitant]
     Active Substance: LEVOTHYROXINE
  4. METOPROLOL SUCC (TOPROL) [Concomitant]

REACTIONS (2)
  - Toothache [None]
  - Gingival bleeding [None]

NARRATIVE: CASE EVENT DATE: 20160202
